FAERS Safety Report 9239343 (Version 3)
Quarter: 2013Q4

REPORT INFORMATION
  Report Type: Spontaneous
  Country: US (occurrence: US)
  Receive Date: 20130418
  Receipt Date: 20131004
  Transmission Date: 20140711
  Serious: Yes (Other)
  Sender: FDA-Public Use
  Company Number: US-BAYER-2013-048162

PATIENT
  Age: 21 Year
  Sex: Female
  Weight: 72.11 kg

DRUGS (3)
  1. MIRENA [Suspect]
     Indication: CONTRACEPTION
     Dosage: 20 MCG/24HR, CONT
     Route: 015
     Dates: start: 20120725, end: 20130411
  2. MIRENA [Suspect]
     Indication: DYSMENORRHOEA
  3. IBUPROFEN [Concomitant]

REACTIONS (5)
  - Amenorrhoea [None]
  - Pregnancy with contraceptive device [Recovered/Resolved]
  - Drug ineffective [None]
  - Abortion spontaneous [None]
  - Human chorionic gonadotropin decreased [None]
